FAERS Safety Report 12462463 (Version 1)
Quarter: 2016Q2

REPORT INFORMATION
  Report Type: Spontaneous
  Country: US (occurrence: US)
  Receive Date: 20160614
  Receipt Date: 20160614
  Transmission Date: 20160902
  Serious: No
  Sender: FDA-Public Use
  Company Number: US-ACCORD-038171

PATIENT
  Age: 62 Year
  Sex: Female

DRUGS (9)
  1. CLONAZEPAM ACCORD [Suspect]
     Active Substance: CLONAZEPAM
     Indication: PRODUCT USED FOR UNKNOWN INDICATION
     Dosage: STRENGTH: 1 MG?FREQUENCY:QHS?STARTED {1 MONTH AGO
     Route: 048
  2. CARBIDOPA/LEVODOPA [Concomitant]
     Dosage: STRENGTH: 25/100 MG?1-2 TIMES DAILY
  3. COLECALCIFEROL [Concomitant]
     Active Substance: CHOLECALCIFEROL
  4. TRAMADOL/TRAMADOL HYDROCHLORIDE [Concomitant]
     Dosage: BID/PRN
  5. GABAPENTIN. [Concomitant]
     Active Substance: GABAPENTIN
  6. HYDRALAZINE [Concomitant]
     Active Substance: HYDRALAZINE HYDROCHLORIDE
  7. CICLOSPORIN [Concomitant]
     Active Substance: CYCLOSPORINE
     Dosage: 1 TAB AT QHS/PRN,
  8. LISINOPRIL. [Concomitant]
     Active Substance: LISINOPRIL
     Dosage: STRENGTH: 40
  9. RYTARY [Concomitant]
     Active Substance: CARBIDOPA\LEVODOPA
     Dosage: 48.75-195MG

REACTIONS (1)
  - Pruritus [Not Recovered/Not Resolved]
